FAERS Safety Report 13072323 (Version 1)
Quarter: 2016Q4

REPORT INFORMATION
  Report Type: Spontaneous
  Country: US (occurrence: US)
  Receive Date: 20161229
  Receipt Date: 20161229
  Transmission Date: 20170207
  Serious: Yes (Life-Threatening, Hospitalization)
  Sender: FDA-Public Use
  Company Number: None

PATIENT
  Age: 38 Year
  Sex: Female
  Weight: 85 kg

DRUGS (3)
  1. BRENTUXIMAB [Suspect]
     Active Substance: BRENTUXIMAB VEDOTIN
     Indication: HODGKIN^S DISEASE REFRACTORY
     Route: 042
     Dates: start: 20161012
  2. POSACONAZOLE [Suspect]
     Active Substance: POSACONAZOLE
     Indication: MUCORMYCOSIS
     Dosage: 300MG ORAL DAILY (IV FROM 10/21-10/25)
     Route: 048
     Dates: start: 20160830, end: 20161020
  3. SULFAMETHOXAZOLE-TRIMETHOPRIM [Concomitant]
     Active Substance: SULFAMETHOXAZOLE\TRIMETHOPRIM

REACTIONS (12)
  - Multiple organ dysfunction syndrome [None]
  - Blood bilirubin increased [None]
  - Graft versus host disease in gastrointestinal tract [None]
  - Lymphadenopathy [None]
  - Graft versus host disease in liver [None]
  - Neutropenia [None]
  - Nocardiosis [None]
  - Embolic stroke [None]
  - Lung infiltration [None]
  - Thrombocytopenia [None]
  - Drug interaction [None]
  - Alopecia [None]

NARRATIVE: CASE EVENT DATE: 20161020
